FAERS Safety Report 21755888 (Version 4)
Quarter: 2024Q1

REPORT INFORMATION
  Report Type: Spontaneous
  Country: US (occurrence: US)
  Receive Date: 20221220
  Receipt Date: 20240103
  Transmission Date: 20240410
  Serious: Yes (Other)
  Sender: FDA-Public Use
  Company Number: US-PFIZER INC-PV202200127794

PATIENT
  Age: 90 Year
  Sex: Male
  Weight: 66.67 kg

DRUGS (1)
  1. XELJANZ XR [Suspect]
     Active Substance: TOFACITINIB CITRATE
     Dosage: UNK

REACTIONS (3)
  - Neoplasm malignant [Not Recovered/Not Resolved]
  - Hypoacusis [Unknown]
  - Illness [Unknown]

NARRATIVE: CASE EVENT DATE: 20230101
